FAERS Safety Report 9777750 (Version 3)
Quarter: 2014Q1

REPORT INFORMATION
  Report Type: Spontaneous
  Country: US (occurrence: US)
  Receive Date: 20131223
  Receipt Date: 20140108
  Transmission Date: 20141002
  Serious: Yes (Death, Hospitalization)
  Sender: FDA-Public Use
  Company Number: US-BIOGENIDEC-2013BI120888

PATIENT
  Age: 46 Year
  Sex: Female

DRUGS (2)
  1. TYSABRI [Suspect]
     Indication: MULTIPLE SCLEROSIS
     Route: 042
     Dates: start: 20070109, end: 20080104
  2. TYSABRI [Suspect]
     Indication: MULTIPLE SCLEROSIS
     Route: 042
     Dates: start: 20100623, end: 20131105

REACTIONS (7)
  - Cardio-respiratory arrest [Fatal]
  - Septic shock [Fatal]
  - Pneumonia [Fatal]
  - Respiratory distress [Fatal]
  - Multiple sclerosis relapse [Fatal]
  - Urinary tract infection [Fatal]
  - Cerebrovascular accident [Fatal]
